FAERS Safety Report 9551935 (Version 1)
Quarter: 2013Q3

REPORT INFORMATION
  Report Type: Spontaneous
  Country: US (occurrence: None)
  Receive Date: 20130724
  Receipt Date: 20130724
  Transmission Date: 20140515
  Serious: Yes (Other)
  Sender: FDA-Public Use
  Company Number: PHEH2012US013939

PATIENT
  Age: 46 Year
  Sex: Male
  Weight: 107 kg

DRUGS (9)
  1. GLEEVEC (IMATINIB) UNKNOWN [Suspect]
     Indication: CHRONIC MYELOID LEUKAEMIA
     Route: 048
     Dates: start: 20120522
  2. OXYCODONE (OXYCODONE) [Suspect]
     Dosage: 05 MG, UNK
  3. ATIVAN (LORAZEPAM) [Concomitant]
  4. FISH OIL (FISH OIL) [Concomitant]
  5. LIVALO (ITASTATIN CALCIUM) [Concomitant]
  6. MULTIVITAMINS (ASCORBIC ACID, ERGOCALCIFEROL, FOLIC ACID, NICOTINAMIDE, PANTHENOL, RETINOL, BIBOFLAVIN, THIAMINE HYDROCHLORIDE) [Concomitant]
  7. IRON (IRON) [Concomitant]
  8. VITAMIN C [Concomitant]
  9. PNEUMOVAX (PNEUMOCOCCAL VACCINE) [Concomitant]

REACTIONS (13)
  - Hypertension [None]
  - Cardiac murmur [None]
  - Mean cell haemoglobin concentration increased [None]
  - Back pain [None]
  - Muscle spasms [None]
  - Lymphocyte count decreased [None]
  - Granulocyte count increased [None]
  - Fatigue [None]
  - Palpitations [None]
  - Cough [None]
  - Vomiting [None]
  - Nausea [None]
  - Diarrhoea [None]
